FAERS Safety Report 17889356 (Version 2)
Quarter: 2020Q2

REPORT INFORMATION
  Report Type: Spontaneous
  Country: US (occurrence: US)
  Receive Date: 20200612
  Receipt Date: 20200615
  Transmission Date: 20200714
  Serious: No
  Sender: FDA-Public Use
  Company Number: US-PFIZER INC-2020012704

PATIENT
  Age: 73 Year
  Sex: Female
  Weight: 70.31 kg

DRUGS (2)
  1. XELJANZ XR [Suspect]
     Active Substance: TOFACITINIB CITRATE
     Indication: RHEUMATOID ARTHRITIS
  2. XELJANZ XR [Suspect]
     Active Substance: TOFACITINIB CITRATE
     Indication: RHEUMATOID FACTOR POSITIVE
     Dosage: 11 MG, 1X/DAY
     Route: 048

REACTIONS (3)
  - Pain [Recovering/Resolving]
  - Gastrointestinal disorder [Unknown]
  - Condition aggravated [Not Recovered/Not Resolved]
